FAERS Safety Report 5743301-7 (Version None)
Quarter: 2008Q2

REPORT INFORMATION
  Report Type: 
  Country: None (occurrence: None)
  Receive Date: 20080519
  Receipt Date: 20080507
  Transmission Date: 20081010
  Serious: Yes (Hospitalization, Other)
  Sender: FDA-Public Use
  Company Number: PT-PFIZER INC-2008031602

PATIENT
  Sex: Male
  Weight: 65 kg

DRUGS (6)
  1. LYRICA [Suspect]
     Indication: EPILEPSY
     Route: 048
     Dates: start: 20080320, end: 20080325
  2. HYDANTIN [Suspect]
     Indication: EPILEPSY
     Route: 048
     Dates: start: 20080301, end: 20080325
  3. AMLODIPINE [Concomitant]
     Route: 048
  4. ENALAPRIL MALEATE [Concomitant]
     Route: 048
  5. EZETIMIBE/SIMVASTATIN [Concomitant]
     Route: 048
  6. ASPEGIC 1000 [Concomitant]
     Route: 048

REACTIONS (1)
  - TOXIC SKIN ERUPTION [None]
